FAERS Safety Report 8117829-9 (Version None)
Quarter: 2012Q1

REPORT INFORMATION
  Report Type: 
  Country: None (occurrence: None)
  Receive Date: 20120131
  Receipt Date: 20120120
  Transmission Date: 20120608
  Serious: Yes (Death)
  Sender: FDA-Public Use
  Company Number: FR-007561

PATIENT
  Age: 65 Year
  Sex: Male

DRUGS (1)
  1. FIRMAGON [Suspect]
     Indication: PROSTATE CANCER
     Dosage: 240 MG, 1X, SUBCUTANEOUS
     Route: 058
     Dates: start: 20110101, end: 20110101

REACTIONS (2)
  - TORSADE DE POINTES [None]
  - DRUG INTERACTION [None]
